FAERS Safety Report 4683350-3 (Version None)
Quarter: 2005Q2

REPORT INFORMATION
  Report Type: 
  Country: None (occurrence: None)
  Receive Date: 20050606
  Receipt Date: 20050606
  Transmission Date: 20051028
  Serious: Yes (Hospitalization)
  Sender: FDA-Public Use
  Company Number: None

PATIENT
  Age: 89 Year
  Sex: Male
  Weight: 75 kg

DRUGS (11)
  1. NEOSTIGMINE [Suspect]
     Indication: GASTROINTESTINAL MOTILITY DISORDER
     Dosage: 1 MG EVERY 6 HOURS
  2. METOCLOPRAMIDE [Concomitant]
  3. LEVOTHYROXINE [Concomitant]
  4. DARBOPOEITIN [Concomitant]
  5. ALLOPURINOL [Concomitant]
  6. HYDROCORTISONE [Concomitant]
  7. ALBUTEROL SULFATE AND IPRATROPIUM BROMIDE [Concomitant]
  8. CIPROFLOXACIN [Concomitant]
  9. LINEZOLID [Concomitant]
  10. PROTONIX [Concomitant]
  11. VANCOMYCIN [Concomitant]

REACTIONS (2)
  - FISTULA [None]
  - INTESTINAL PERFORATION [None]
